FAERS Safety Report 9644753 (Version 1)
Quarter: 2013Q4

REPORT INFORMATION
  Report Type: Report from Study
  Country: AR (occurrence: AR)
  Receive Date: 20131025
  Receipt Date: 20131025
  Transmission Date: 20140711
  Serious: Yes (Death, Other)
  Sender: FDA-Public Use
  Company Number: PHHY2013AR120299

PATIENT
  Sex: Male

DRUGS (1)
  1. EXFORGE [Suspect]
     Dosage: 1 DF, (160 MG VALS, 5 MG AMLO)

REACTIONS (4)
  - Sudden death [Fatal]
  - Cardiac failure [Unknown]
  - Speech disorder [Unknown]
  - Malaise [Unknown]
